FAERS Safety Report 19587313 (Version 4)
Quarter: 2024Q3

REPORT INFORMATION
  Report Type: Spontaneous
  Country: PT (occurrence: PT)
  Receive Date: 20210721
  Receipt Date: 20240723
  Transmission Date: 20241016
  Serious: Yes (Other)
  Sender: AMGEN
  Company Number: PT-SEATTLE GENETICS-2021SGN03513

PATIENT
  Age: 58 Year
  Sex: Female

DRUGS (8)
  1. TRASTUZUMAB [Suspect]
     Active Substance: TRASTUZUMAB
     Indication: HER2 positive breast cancer
     Dosage: UNK
     Route: 065
  2. TRASTUZUMAB [Suspect]
     Active Substance: TRASTUZUMAB
     Dosage: UNK
     Route: 065
  3. CAPECITABINE [Suspect]
     Active Substance: CAPECITABINE
     Indication: HER2 positive breast cancer
     Dosage: UNK
     Route: 065
  4. TUCATINIB [Suspect]
     Active Substance: TUCATINIB
     Indication: HER2 positive breast cancer
     Dosage: 500 MILLIGRAM, QD
     Route: 065
  5. TUKYSA [Suspect]
     Active Substance: TUCATINIB
     Indication: HER2 positive breast cancer
     Dosage: 500 MILLIGRAM, QID
     Route: 065
  6. TUKYSA [Suspect]
     Active Substance: TUCATINIB
     Dosage: 500 MILLIGRAM, QD (250 MG, BID)
     Route: 065
  7. PERTUZUMAB [Concomitant]
     Active Substance: PERTUZUMAB
     Dosage: UNK
  8. ADO-TRASTUZUMAB EMTANSINE [Concomitant]
     Active Substance: ADO-TRASTUZUMAB EMTANSINE
     Dosage: UNK

REACTIONS (4)
  - Hyperbilirubinaemia [Unknown]
  - Off label use [Unknown]
  - Palmar-plantar erythrodysaesthesia syndrome [Unknown]
  - Stomatitis [Unknown]
